FAERS Safety Report 9192170 (Version 1)
Quarter: 2013Q1

REPORT INFORMATION
  Report Type: Spontaneous
  Country: US (occurrence: None)
  Receive Date: 20130326
  Receipt Date: 20130326
  Transmission Date: 20140127
  Serious: Yes (Other)
  Sender: FDA-Public Use
  Company Number: None

PATIENT
  Age: 62 Year
  Sex: Female
  Weight: 59.88 kg

DRUGS (2)
  1. TRAMADOL [Suspect]
     Indication: HEADACHE
     Dosage: EVERY 4-6 HRS
     Route: 048
     Dates: start: 20130322, end: 20130323
  2. TRAMADOL [Suspect]
     Indication: NECK PAIN
     Dosage: EVERY 4-6 HRS
     Route: 048
     Dates: start: 20130322, end: 20130323

REACTIONS (4)
  - Nausea [None]
  - Vomiting [None]
  - Dizziness [None]
  - Muscular weakness [None]
